FAERS Safety Report 22189571 (Version 1)
Quarter: 2023Q2

REPORT INFORMATION
  Report Type: Spontaneous
  Country: GB (occurrence: GB)
  Receive Date: 20230410
  Receipt Date: 20230410
  Transmission Date: 20230722
  Serious: Yes (Other)
  Sender: FDA-Public Use
  Company Number: GB-SANOFI-01545281

PATIENT
  Age: 56 Year
  Sex: Female

DRUGS (1)
  1. LEFLUNOMIDE [Suspect]
     Active Substance: LEFLUNOMIDE
     Indication: Arthritis
     Dosage: UNK
     Route: 065

REACTIONS (2)
  - Illness [Unknown]
  - Pulmonary hypertension [Unknown]
